FAERS Safety Report 7505568-4 (Version None)
Quarter: 2011Q2

REPORT INFORMATION
  Report Type: 
  Country: None (occurrence: None)
  Receive Date: 20110526
  Receipt Date: 20110518
  Transmission Date: 20111010
  Serious: Yes (Other)
  Sender: FDA-Public Use
  Company Number: FR-PFIZER INC-2010025904

PATIENT
  Sex: Female
  Weight: 83 kg

DRUGS (1)
  1. AROMASIN [Suspect]
     Indication: BREAST CANCER
     Dosage: UNK
     Dates: end: 20100222

REACTIONS (3)
  - OSTEOPOROSIS [None]
  - OSTEOPENIA [None]
  - HYPERCHOLESTEROLAEMIA [None]
